FAERS Safety Report 14590113 (Version 3)
Quarter: 2018Q4

REPORT INFORMATION
  Report Type: Report from Study
  Country: FR (occurrence: FR)
  Receive Date: 20180302
  Receipt Date: 20181026
  Transmission Date: 20190204
  Serious: Yes (Life-Threatening, Hospitalization)
  Sender: FDA-Public Use
  Company Number: FR-ROCHE-2026874

PATIENT
  Age: 39 Year
  Sex: Female
  Weight: 53 kg

DRUGS (3)
  1. DEXAMETHASONE. [Suspect]
     Active Substance: DEXAMETHASONE
     Indication: WALDENSTROM^S MACROGLOBULINAEMIA
     Dosage: LAST DOSE OF DEXAMETHASONE ADMINISTERED ON 05/DEC/2017
     Route: 048
     Dates: start: 20171109
  2. CYCLOPHOSPHAMIDE. [Suspect]
     Active Substance: CYCLOPHOSPHAMIDE
     Indication: WALDENSTROM^S MACROGLOBULINAEMIA
     Dosage: LAST DOSE OF CYCLOPHOSPHAMIDE ADMINISTERED ON 05/DEC/2017
     Route: 048
     Dates: start: 20171109
  3. RITUXIMAB. [Suspect]
     Active Substance: RITUXIMAB
     Indication: WALDENSTROM^S MACROGLOBULINAEMIA
     Dosage: LAST DOSE OF RITUXIMAB ADMINISTERED ON 05/DEC/2017 (375 MG)
     Route: 042
     Dates: start: 20171109

REACTIONS (3)
  - Dyspnoea [Recovering/Resolving]
  - Pyrexia [Recovered/Resolved]
  - Pleural effusion [Recovering/Resolving]

NARRATIVE: CASE EVENT DATE: 20171111
